FAERS Safety Report 15481625 (Version 1)
Quarter: 2018Q4

REPORT INFORMATION
  Report Type: Spontaneous
  Country: GB (occurrence: GB)
  Receive Date: 20181010
  Receipt Date: 20181010
  Transmission Date: 20190205
  Serious: Yes (Disabling, Other)
  Sender: FDA-Public Use
  Company Number: GB-TEVA-2018-GB-962549

PATIENT
  Age: 75 Year
  Sex: Male
  Weight: 69.85 kg

DRUGS (2)
  1. INDAPAMIDE HEMIHYDRATE [Suspect]
     Active Substance: INDAPAMIDE HEMIHYDRATE
     Route: 048
     Dates: start: 20180719, end: 20180910
  2. RANITIDINE HYDROCHLORIDE. [Concomitant]
     Active Substance: RANITIDINE HYDROCHLORIDE
     Route: 065

REACTIONS (4)
  - Abdominal pain upper [Unknown]
  - Vomiting [Not Recovered/Not Resolved]
  - Dizziness postural [Not Recovered/Not Resolved]
  - Palpitations [Not Recovered/Not Resolved]

NARRATIVE: CASE EVENT DATE: 20180907
